FAERS Safety Report 5981607-7 (Version None)
Quarter: 2008Q4

REPORT INFORMATION
  Report Type: 
  Country: None (occurrence: None)
  Receive Date: 20081202
  Receipt Date: 20081121
  Transmission Date: 20090506
  Serious: No
  Sender: FDA-Public Use
  Company Number: 08H-163-0314540-00

PATIENT
  Age: 47 Year
  Sex: Female
  Weight: 107.5 kg

DRUGS (2)
  1. MORPHINE SULFATE INJ [Suspect]
     Indication: MUSCULOSKELETAL PAIN
     Dosage: 5 MG/HR, CONTINUOUS, INTRAVENOUS DRIP
     Route: 041
     Dates: start: 20080506, end: 20080506
  2. PHENERGAN (PROMETHAZINE) [Concomitant]

REACTIONS (1)
  - HYPOTENSION [None]
